FAERS Safety Report 5887693-7 (Version None)
Quarter: 2008Q3

REPORT INFORMATION
  Report Type: 
  Country: None (occurrence: None)
  Receive Date: 20080916
  Receipt Date: 20080908
  Transmission Date: 20090109
  Serious: Yes (Hospitalization)
  Sender: FDA-Public Use
  Company Number: 1000000855

PATIENT
  Age: 43 Year
  Sex: Female

DRUGS (5)
  1. THYROID TAB [Suspect]
     Indication: HYPOTHYROIDISM
     Dosage: 160 MG (160 MG), ORAL; 120 MG (120 MG), ORAL; 90 MG (90 MG), ORAL
     Route: 048
     Dates: start: 20060101, end: 20080601
  2. THYROID TAB [Suspect]
     Indication: HYPOTHYROIDISM
     Dosage: 160 MG (160 MG), ORAL; 120 MG (120 MG), ORAL; 90 MG (90 MG), ORAL
     Route: 048
     Dates: start: 20080601, end: 20080701
  3. THYROID TAB [Suspect]
     Indication: HYPOTHYROIDISM
     Dosage: 160 MG (160 MG), ORAL; 120 MG (120 MG), ORAL; 90 MG (90 MG), ORAL
     Route: 048
     Dates: start: 20080701, end: 20080818
  4. CYTOMEL [Suspect]
     Indication: HYPOTHYROIDISM
     Dosage: 25 MCG (25 MCG), ORAL; 50 MCG (50 MCG), ORAL
     Route: 048
     Dates: start: 20080601, end: 20080701
  5. CYTOMEL [Suspect]
     Indication: HYPOTHYROIDISM
     Dosage: 25 MCG (25 MCG), ORAL; 50 MCG (50 MCG), ORAL
     Route: 048
     Dates: start: 20080701, end: 20080818

REACTIONS (5)
  - BLOOD THYROID STIMULATING HORMONE DECREASED [None]
  - DRUG INTERACTION [None]
  - HEPATIC ENZYME INCREASED [None]
  - JAUNDICE [None]
  - TRI-IODOTHYRONINE DECREASED [None]
